FAERS Safety Report 25321990 (Version 1)
Quarter: 2025Q2

REPORT INFORMATION
  Report Type: Spontaneous
  Country: US (occurrence: US)
  Receive Date: 20250516
  Receipt Date: 20250516
  Transmission Date: 20250717
  Serious: No
  Sender: BIOGEN
  Company Number: US-BIOGEN-2021BI01035841

PATIENT
  Age: 68 Year
  Sex: Female

DRUGS (24)
  1. VUMERITY [Suspect]
     Active Substance: DIROXIMEL FUMARATE
     Indication: Multiple sclerosis
     Route: 050
  2. VUMERITY [Suspect]
     Active Substance: DIROXIMEL FUMARATE
     Route: 050
  3. KLOR-CON [Concomitant]
     Active Substance: POTASSIUM CHLORIDE
     Route: 050
  4. BACLOFEN [Concomitant]
     Active Substance: BACLOFEN
     Route: 050
  5. BUPROPION HYDROCHLORIDE [Concomitant]
     Active Substance: BUPROPION HYDROCHLORIDE
     Route: 050
  6. MELOXICAM [Concomitant]
     Active Substance: MELOXICAM
     Route: 050
  7. SINGULAIR [Concomitant]
     Active Substance: MONTELUKAST SODIUM
     Route: 050
  8. VICODIN [Concomitant]
     Active Substance: ACETAMINOPHEN\HYDROCODONE BITARTRATE
     Route: 050
  9. HUMALOG [Concomitant]
     Active Substance: INSULIN LISPRO
     Route: 050
  10. PREDNISOLONE [Concomitant]
     Active Substance: PREDNISOLONE
     Route: 050
  11. PROVENTIL HFA [Concomitant]
     Active Substance: ALBUTEROL SULFATE
     Route: 050
  12. LASIX [Concomitant]
     Active Substance: FUROSEMIDE
     Route: 050
  13. NUVIGIL [Concomitant]
     Active Substance: ARMODAFINIL
     Route: 050
  14. PROZAC [Concomitant]
     Active Substance: FLUOXETINE HYDROCHLORIDE
     Route: 050
  15. LYRICA [Concomitant]
     Active Substance: PREGABALIN
     Route: 050
  16. SYNTHROID [Concomitant]
     Active Substance: LEVOTHYROXINE SODIUM
     Route: 050
  17. TOPAMAX [Concomitant]
     Active Substance: TOPIRAMATE
     Route: 050
  18. LAMICTAL [Concomitant]
     Active Substance: LAMOTRIGINE
     Route: 050
  19. ASPIRIN [Concomitant]
     Active Substance: ASPIRIN
     Route: 050
  20. EXCEDRIN [Concomitant]
     Active Substance: ACETAMINOPHEN\ASPIRIN\CAFFEINE
     Indication: Migraine
     Route: 050
  21. SULFAMETHOXAZOLE [Concomitant]
     Active Substance: SULFAMETHOXAZOLE
     Indication: Product used for unknown indication
     Route: 050
  22. ESTRADIOL [Concomitant]
     Active Substance: ESTRADIOL
     Route: 050
  23. VITAMIN D [Concomitant]
     Active Substance: VITAMIN D NOS
     Route: 050
  24. MAGNESIUM [Concomitant]
     Active Substance: MAGNESIUM
     Route: 050

REACTIONS (22)
  - Prescribed underdose [Unknown]
  - Visual impairment [Not Recovered/Not Resolved]
  - Urinary tract infection [Not Recovered/Not Resolved]
  - Skin abrasion [Not Recovered/Not Resolved]
  - Wound [Not Recovered/Not Resolved]
  - Multiple sclerosis [Unknown]
  - Macular degeneration [Unknown]
  - Cataract [Unknown]
  - White blood cell count decreased [Unknown]
  - Retinal haemorrhage [Unknown]
  - Bronchitis [Unknown]
  - Tracheal injury [Unknown]
  - Multiple sclerosis relapse [Unknown]
  - Abdominal discomfort [Unknown]
  - Dysphagia [Unknown]
  - Memory impairment [Unknown]
  - Insomnia [Unknown]
  - Headache [Unknown]
  - Peripheral swelling [Unknown]
  - Fall [Recovered/Resolved]
  - Lymphocyte count decreased [Unknown]
  - Dyspepsia [Unknown]

NARRATIVE: CASE EVENT DATE: 20210301
